FAERS Safety Report 14880896 (Version 1)
Quarter: 2018Q2

REPORT INFORMATION
  Report Type: Spontaneous
  Country: US (occurrence: US)
  Receive Date: 20180425
  Receipt Date: 20180425
  Transmission Date: 20180711
  Serious: Yes (Hospitalization)
  Sender: FDA-Public Use
  Company Number: None

PATIENT
  Age: 8 Month
  Sex: Female

DRUGS (4)
  1. VIGABATRIN. [Suspect]
     Active Substance: VIGABATRIN
     Indication: CARDIAC DISORDER
     Route: 048
     Dates: start: 20180324
  2. LEVETIRACETA SOL [Concomitant]
  3. VIGABATRIN. [Suspect]
     Active Substance: VIGABATRIN
     Indication: CARDIAC DISORDER
     Route: 048
     Dates: start: 20180324
  4. SILVER SULF CRE [Concomitant]

REACTIONS (1)
  - Hospitalisation [None]

NARRATIVE: CASE EVENT DATE: 20180424
